FAERS Safety Report 6099355-4 (Version None)
Quarter: 2009Q1

REPORT INFORMATION
  Report Type: 
  Country: None (occurrence: None)
  Receive Date: 20090303
  Receipt Date: 20090218
  Transmission Date: 20090719
  Serious: Yes (Death, Hospitalization)
  Sender: FDA-Public Use
  Company Number: US-ELI_LILLY_AND_COMPANY-US200902004840

PATIENT
  Sex: Female
  Weight: 58.05 kg

DRUGS (20)
  1. PEMETREXED [Suspect]
     Indication: NON-SMALL CELL LUNG CANCER
     Dosage: 500 MG/M2, OTHER
     Route: 042
     Dates: start: 20080903, end: 20090204
  2. GEMCITABINE HCL [Suspect]
     Indication: NON-SMALL CELL LUNG CANCER
     Dosage: 1500 MG/M2, OTHER
     Route: 042
     Dates: start: 20080903, end: 20090204
  3. BEVACIZUMAB [Suspect]
     Indication: NON-SMALL CELL LUNG CANCER
     Dosage: 10 MG/KG, OTHER
     Dates: start: 20080903, end: 20090204
  4. EVISTA [Concomitant]
  5. FOLIC ACID [Concomitant]
     Dates: end: 20090201
  6. SINGULAIR [Concomitant]
  7. LIPITOR [Concomitant]
  8. GEMFIBROZIL [Concomitant]
     Dates: end: 20090201
  9. LEVOXYL [Concomitant]
  10. CARTIA /USA/ [Concomitant]
     Dosage: 360 MG, UNK
  11. HYDROCHLOROTHIAZIDE [Concomitant]
  12. ZETIA [Concomitant]
  13. ASPIRIN [Concomitant]
     Dosage: 81 MG, DAILY (1/D)
  14. LUMIGAN [Concomitant]
     Route: 047
  15. PROVENTIL                               /USA/ [Concomitant]
  16. MULTI-VITAMIN [Concomitant]
  17. SOMA [Concomitant]
  18. PATANOL [Concomitant]
  19. NEXIUM [Concomitant]
     Dosage: 40 MG, DAILY (1/D)
  20. VICODIN [Concomitant]

REACTIONS (3)
  - EPISTAXIS [None]
  - GASTRIC ULCER HAEMORRHAGE [None]
  - RESPIRATORY FAILURE [None]
